FAERS Safety Report 6092087-8 (Version None)
Quarter: 2009Q1

REPORT INFORMATION
  Report Type: 
  Country: None (occurrence: None)
  Receive Date: 20090225
  Receipt Date: 20090213
  Transmission Date: 20090719
  Serious: Yes (Hospitalization)
  Sender: FDA-Public Use
  Company Number: FR-PFIZER INC-2009170922

PATIENT

DRUGS (5)
  1. AMLOR [Suspect]
     Dosage: 10 MG, 1X/DAY EVERY DAY
     Route: 048
  2. ARANESP [Suspect]
     Dosage: 10 UG, EVERY 2 WEEKS
     Route: 058
     Dates: end: 20081001
  3. ALENDRONATE SODIUM/COLECALCIFEROL [Suspect]
     Dosage: 1 DF, WEEKLY
     Route: 048
  4. SECTRAL [Suspect]
     Dosage: 200 MG, 1X/DAY EVERY DAY
     Route: 048
  5. PLAVIX [Suspect]
     Dosage: 75 MG, 1X/DAY EVERY DAY
     Route: 048

REACTIONS (4)
  - FEELING HOT [None]
  - NECROSIS [None]
  - PRURITUS [None]
  - PURPURA [None]
